FAERS Safety Report 5098675-X (Version None)
Quarter: 2006Q3

REPORT INFORMATION
  Report Type: 
  Country: None (occurrence: None)
  Receive Date: 20060905
  Receipt Date: 20060824
  Transmission Date: 20061208
  Serious: Yes (Other)
  Sender: FDA-Public Use
  Company Number: MEDI-0004872

PATIENT
  Sex: Male

DRUGS (2)
  1. ETHYOL [Suspect]
  2. .. [Concomitant]

REACTIONS (1)
  - NEUTROPENIA [None]
